FAERS Safety Report 6228292-7 (Version None)
Quarter: 2009Q2

REPORT INFORMATION
  Report Type: 
  Country: None (occurrence: None)
  Receive Date: 20090612
  Receipt Date: 20090609
  Transmission Date: 20091009
  Serious: Yes (Death)
  Sender: FDA-Public Use
  Company Number: PHHY2009CA21599

PATIENT
  Sex: Male

DRUGS (2)
  1. CO-DIOVAN T32564+ [Suspect]
     Indication: HYPERTENSION
     Dosage: 80/12.5 MG/DAY
     Route: 048
     Dates: start: 20080207, end: 20080612
  2. CO-DIOVAN T32564+ [Suspect]
     Indication: LEFT VENTRICULAR HYPERTROPHY

REACTIONS (1)
  - DEATH [None]
